FAERS Safety Report 20585735 (Version 2)
Quarter: 2022Q1

REPORT INFORMATION
  Report Type: Report from Study
  Country: DK (occurrence: DK)
  Receive Date: 20220312
  Receipt Date: 20220317
  Transmission Date: 20220423
  Serious: Yes (Hospitalization)
  Sender: FDA-Public Use
  Company Number: DK-Zentiva-2021-ZT-010215

PATIENT
  Age: 79 Year
  Sex: Female
  Weight: 88 kg

DRUGS (28)
  1. BENDAMUSTINE HYDROCHLORIDE [Suspect]
     Active Substance: BENDAMUSTINE HYDROCHLORIDE
     Indication: Follicular lymphoma stage IV
     Route: 042
     Dates: start: 20210308, end: 20210309
  2. BENDAMUSTINE HYDROCHLORIDE [Suspect]
     Active Substance: BENDAMUSTINE HYDROCHLORIDE
     Route: 042
     Dates: start: 20210406, end: 20210407
  3. BENDAMUSTINE HYDROCHLORIDE [Suspect]
     Active Substance: BENDAMUSTINE HYDROCHLORIDE
     Route: 042
     Dates: start: 20210504, end: 20210505
  4. BENDAMUSTINE HYDROCHLORIDE [Suspect]
     Active Substance: BENDAMUSTINE HYDROCHLORIDE
     Route: 042
     Dates: start: 20210607, end: 20210608
  5. BENDAMUSTINE HYDROCHLORIDE [Suspect]
     Active Substance: BENDAMUSTINE HYDROCHLORIDE
     Route: 042
     Dates: start: 20210705, end: 20210706
  6. EPCORITAMAB [Suspect]
     Active Substance: EPCORITAMAB
     Indication: Follicular lymphoma stage IV
     Dosage: (PRIMING DOSE, SINGLE)
     Route: 058
     Dates: start: 20210308, end: 20210308
  7. EPCORITAMAB [Suspect]
     Active Substance: EPCORITAMAB
     Dosage: (INTERMEDIATE DOSE, SINGLE)
     Route: 058
     Dates: start: 20210315, end: 20210315
  8. EPCORITAMAB [Suspect]
     Active Substance: EPCORITAMAB
     Dosage: (FULL DOSE, CYCLE 1-3)
     Route: 058
     Dates: start: 20210322, end: 20210527
  9. EPCORITAMAB [Suspect]
     Active Substance: EPCORITAMAB
     Dosage: (FULL DOSE, CYCLE 4-9)
     Route: 058
     Dates: start: 20210607
  10. EPCORITAMAB [Suspect]
     Active Substance: EPCORITAMAB
     Dosage: (10TH DOSE)
     Route: 058
     Dates: start: 20210705
  11. RITUXIMAB [Suspect]
     Active Substance: RITUXIMAB
     Indication: Follicular lymphoma stage IV
     Route: 042
     Dates: start: 20210308
  12. RITUXIMAB [Suspect]
     Active Substance: RITUXIMAB
     Route: 042
     Dates: start: 20210705
  13. PRAMIPEXOLE [Concomitant]
     Active Substance: PRAMIPEXOLE
     Indication: Product used for unknown indication
     Route: 065
     Dates: start: 20120823
  14. ACICLODAN [Concomitant]
     Indication: Product used for unknown indication
     Route: 065
     Dates: start: 20210308
  15. UNIKALK FORTE [Concomitant]
     Indication: Product used for unknown indication
     Route: 065
     Dates: start: 20210504
  16. Furix [Concomitant]
     Indication: Product used for unknown indication
     Route: 065
     Dates: start: 20210308
  17. Furix [Concomitant]
     Route: 065
     Dates: start: 20210509
  18. FLUTICASONE FUROATE\VILANTEROL TRIFENATATE [Concomitant]
     Active Substance: FLUTICASONE FUROATE\VILANTEROL TRIFENATATE
     Indication: Product used for unknown indication
     Route: 065
     Dates: start: 20210708
  19. DAPSON SCANPHARM [Concomitant]
     Indication: Product used for unknown indication
     Route: 065
     Dates: start: 20210607
  20. HYDROCORTISONE\MICONAZOLE NITRATE [Concomitant]
     Active Substance: HYDROCORTISONE\MICONAZOLE NITRATE
     Indication: Product used for unknown indication
     Route: 065
     Dates: start: 20210715
  21. KALIUMKLORID [Concomitant]
     Indication: Product used for unknown indication
     Route: 065
     Dates: start: 20210308
  22. IMODIUM [Concomitant]
     Active Substance: LOPERAMIDE HYDROCHLORIDE
     Indication: Product used for unknown indication
     Route: 065
     Dates: start: 20210518
  23. METOCLOPRAMIDE;ONDANSETRON [Concomitant]
     Indication: Product used for unknown indication
     Route: 065
     Dates: start: 20210509
  24. ACETAMINOPHEN [Concomitant]
     Active Substance: ACETAMINOPHEN
     Indication: Product used for unknown indication
     Route: 065
     Dates: start: 20210308
  25. PIVMECILLINAM HYDROCHLORIDE [Concomitant]
     Active Substance: PIVMECILLINAM HYDROCHLORIDE
     Indication: Product used for unknown indication
     Route: 065
     Dates: start: 20210610, end: 20210614
  26. ALBUTEROL [Concomitant]
     Active Substance: ALBUTEROL
     Indication: Product used for unknown indication
     Route: 065
     Dates: start: 20210708
  27. PREDNISOLONE [Concomitant]
     Active Substance: PREDNISOLONE
     Indication: Prophylaxis
     Route: 048
     Dates: start: 20210705, end: 20210705
  28. CLEMASTINE FUMARATE [Concomitant]
     Active Substance: CLEMASTINE FUMARATE
     Indication: Product used for unknown indication
     Route: 065
     Dates: start: 20210509

REACTIONS (4)
  - Hydronephrosis [Unknown]
  - Constipation [Unknown]
  - Sepsis [Unknown]
  - Blood creatinine increased [Unknown]

NARRATIVE: CASE EVENT DATE: 20210712
